FAERS Safety Report 16218212 (Version 2)
Quarter: 2019Q2

REPORT INFORMATION
  Report Type: Report from Study
  Country: US (occurrence: US)
  Receive Date: 20190419
  Receipt Date: 20190502
  Transmission Date: 20190711
  Serious: Yes (Hospitalization, Other)
  Sender: FDA-Public Use
  Company Number: US-BEH-2019101588

PATIENT

DRUGS (2)
  1. BLINDED PLACEBO [Suspect]
     Active Substance: INVESTIGATIONAL PRODUCT
     Indication: PRODUCT USED FOR UNKNOWN INDICATION
     Dosage: UNK
     Route: 065
  2. PRIVIGEN [Suspect]
     Active Substance: HUMAN IMMUNOGLOBULIN G
     Indication: PRODUCT USED FOR UNKNOWN INDICATION
     Dosage: UNK
     Route: 065

REACTIONS (7)
  - Fluid overload [Unknown]
  - Dyspnoea [Recovered/Resolved]
  - Haemophilus infection [Recovered/Resolved]
  - Upper respiratory tract infection [Recovered/Resolved]
  - Viral infection [Recovered/Resolved]
  - Hydronephrosis [Recovered/Resolved]
  - Acute kidney injury [Unknown]
